FAERS Safety Report 4818862-2 (Version None)
Quarter: 2005Q4

REPORT INFORMATION
  Report Type: 
  Country: None (occurrence: None)
  Receive Date: 20051101
  Receipt Date: 20051026
  Transmission Date: 20060501
  Serious: Yes (Disabling)
  Sender: FDA-Public Use
  Company Number: 2005-133992-NL

PATIENT
  Age: 78 Year
  Sex: Female

DRUGS (9)
  1. MIRTAZAPINE [Suspect]
     Indication: DEPRESSION
     Dosage: 15 MG ORAL
     Route: 048
  2. PHENYTOIN SODIUM [Concomitant]
  3. CARBAMAZEPINE [Concomitant]
  4. ACETYLSALICYLIC ACID SRT [Concomitant]
  5. CLOPIDOGREL BISULFATE [Concomitant]
  6. GLICLAZIDE [Concomitant]
  7. PRAVASTATIN SODIUM [Concomitant]
  8. ATENTOLOL [Concomitant]
  9. GLYCERYL TRINITRATE [Concomitant]

REACTIONS (4)
  - CONFUSIONAL STATE [None]
  - CONVULSION [None]
  - HYPOKINESIA [None]
  - HYPONATRAEMIA [None]
